FAERS Safety Report 13450022 (Version 1)
Quarter: 2017Q2

REPORT INFORMATION
  Report Type: Spontaneous
  Country: US (occurrence: US)
  Receive Date: 20170417
  Receipt Date: 20170417
  Transmission Date: 20170830
  Serious: No
  Sender: FDA-Public Use
  Company Number: US-BION-20160518

PATIENT
  Age: 66 Year
  Sex: Male
  Weight: 72.57 kg

DRUGS (3)
  1. ALEVE [Concomitant]
     Active Substance: NAPROXEN SODIUM
     Dosage: 1 BID
     Route: 048
  2. ADVIL [Concomitant]
     Active Substance: IBUPROFEN
     Dosage: 2 DF, THREE TIMES A DAY
  3. ALEVE TENS DIRECT THERAPY [Suspect]
     Active Substance: DEVICE
     Indication: PAIN
     Dosage: 30 MINUTE SESSION

REACTIONS (2)
  - Off label use [Unknown]
  - Therapeutic product ineffective for unapproved indication [None]
